FAERS Safety Report 18965703 (Version 7)
Quarter: 2022Q1

REPORT INFORMATION
  Report Type: Report from Study
  Country: US (occurrence: US)
  Receive Date: 20210304
  Receipt Date: 20220328
  Transmission Date: 20220423
  Serious: Yes (Hospitalization, Other)
  Sender: FDA-Public Use
  Company Number: US-ABBVIE-21K-163-3798472-00

PATIENT
  Sex: Male

DRUGS (5)
  1. IMBRUVICA [Suspect]
     Active Substance: IBRUTINIB
     Indication: Chronic lymphocytic leukaemia
     Route: 048
     Dates: start: 20210113, end: 2021
  2. IMBRUVICA [Suspect]
     Active Substance: IBRUTINIB
     Indication: Chronic lymphocytic leukaemia
     Route: 048
     Dates: start: 2021, end: 2021
  3. IMBRUVICA [Suspect]
     Active Substance: IBRUTINIB
     Route: 048
     Dates: end: 2021
  4. IMBRUVICA [Suspect]
     Active Substance: IBRUTINIB
     Route: 048
     Dates: start: 2021
  5. IMBRUVICA [Suspect]
     Active Substance: IBRUTINIB
     Route: 048

REACTIONS (14)
  - Myocardial infarction [Not Recovered/Not Resolved]
  - Sinus operation [Unknown]
  - Bone deformity [Unknown]
  - Intestinal perforation [Unknown]
  - Heart rate irregular [Not Recovered/Not Resolved]
  - Prostate cancer [Unknown]
  - Abdominal adhesions [Unknown]
  - Nephrolithiasis [Unknown]
  - Computerised tomogram abnormal [Unknown]
  - Muscle atrophy [Unknown]
  - Myalgia [Recovered/Resolved]
  - Cystitis [Unknown]
  - Pain [Unknown]
  - Weight decreased [Unknown]

NARRATIVE: CASE EVENT DATE: 20210101
